APPROVED DRUG PRODUCT: DONEPEZIL HYDROCHLORIDE
Active Ingredient: DONEPEZIL HYDROCHLORIDE
Strength: 23MG
Dosage Form/Route: TABLET;ORAL
Application: A203713 | Product #001 | TE Code: AB
Applicant: DEXCEL PHARMA TECHNOLOGIES LTD
Approved: Feb 19, 2016 | RLD: No | RS: No | Type: RX